FAERS Safety Report 9890564 (Version 1)
Quarter: 2014Q1

REPORT INFORMATION
  Report Type: Spontaneous
  Country: US (occurrence: US)
  Receive Date: 20140212
  Receipt Date: 20140212
  Transmission Date: 20141002
  Serious: Yes (Hospitalization)
  Sender: FDA-Public Use
  Company Number: US-AMGEN-USASP2014009633

PATIENT
  Sex: 0

DRUGS (2)
  1. NEULASTA [Suspect]
     Indication: PROPHYLAXIS
     Dosage: UNK
     Route: 065
  2. NEULASTA [Suspect]
     Dosage: UNK
     Route: 065

REACTIONS (1)
  - Neutrophil count abnormal [Unknown]
